FAERS Safety Report 6744877-3 (Version None)
Quarter: 2010Q2

REPORT INFORMATION
  Report Type: 
  Country: None (occurrence: None)
  Receive Date: 20100527
  Receipt Date: 20100422
  Transmission Date: 20101027
  Serious: No
  Sender: FDA-Public Use
  Company Number: US-BRISTOL-MYERS SQUIBB COMPANY-15067481

PATIENT
  Age: 92 Year
  Sex: Male

DRUGS (5)
  1. ONGLYZA [Suspect]
  2. NORVASC [Concomitant]
  3. LOTREL [Concomitant]
  4. AMARYL [Concomitant]
  5. COUMADIN [Concomitant]
     Indication: ATRIAL FIBRILLATION

REACTIONS (1)
  - OEDEMA PERIPHERAL [None]
